FAERS Safety Report 13036145 (Version 1)
Quarter: 2016Q4

REPORT INFORMATION
  Report Type: Spontaneous
  Country: US (occurrence: US)
  Receive Date: 20161216
  Receipt Date: 20161216
  Transmission Date: 20170207
  Serious: No
  Sender: FDA-Public Use
  Company Number: US-PERRIGO-15US012337

PATIENT
  Age: 85 Year
  Sex: Female
  Weight: 49.43 kg

DRUGS (2)
  1. BACITRACIN. [Suspect]
     Active Substance: BACITRACIN
     Indication: EYELID INFECTION
     Dosage: ONE THIN LAYER, SINGLE
     Route: 047
     Dates: start: 20151120, end: 20151120
  2. BACITRACIN. [Suspect]
     Active Substance: BACITRACIN
     Dosage: ONE THIN LAYER, SINGLE TO BOTH EYELIDS
     Route: 061
     Dates: start: 20151121, end: 20151121

REACTIONS (8)
  - Ocular hyperaemia [Not Recovered/Not Resolved]
  - Eye irritation [Not Recovered/Not Resolved]
  - Off label use [None]
  - Eye pruritus [Not Recovered/Not Resolved]
  - Lacrimation increased [Not Recovered/Not Resolved]
  - Drug administered at inappropriate site [Recovered/Resolved]
  - Dysgeusia [Recovered/Resolved]
  - Nausea [Recovered/Resolved]

NARRATIVE: CASE EVENT DATE: 20151120
